FAERS Safety Report 22129126 (Version 2)
Quarter: 2023Q2

REPORT INFORMATION
  Report Type: Spontaneous
  Country: CZ (occurrence: CZ)
  Receive Date: 20230323
  Receipt Date: 20230419
  Transmission Date: 20230722
  Serious: Yes (Life-Threatening, Hospitalization)
  Sender: FDA-Public Use
  Company Number: CZ-ABBVIE-4700769

PATIENT
  Age: 48 Year
  Sex: Male
  Weight: 87 kg

DRUGS (3)
  1. RINVOQ [Suspect]
     Active Substance: UPADACITINIB
     Indication: Dermatitis atopic
     Dosage: 30 MILLIGRAM
     Route: 048
     Dates: start: 20230131, end: 20230303
  2. DESLORATADINE [Concomitant]
     Active Substance: DESLORATADINE
     Indication: Dermatitis atopic
     Dosage: 5 MILLIGRAM
     Route: 048
     Dates: start: 2020
  3. TELMISARTAN [Concomitant]
     Active Substance: TELMISARTAN
     Indication: Hypertension
     Dosage: 80 MILLIGRAM
     Route: 048
     Dates: start: 2022

REACTIONS (11)
  - Acute endocarditis [Recovering/Resolving]
  - Mitral valve incompetence [Recovering/Resolving]
  - Cerebral artery embolism [Unknown]
  - Thrombocytopenia [Recovering/Resolving]
  - Endocarditis staphylococcal [Unknown]
  - Acute kidney injury [Recovering/Resolving]
  - Limb operation [Recovering/Resolving]
  - Mitral valve replacement [Recovering/Resolving]
  - Cardiac failure [Recovering/Resolving]
  - Cerebral haemorrhage [Recovering/Resolving]
  - Hepatorenal syndrome [Recovering/Resolving]

NARRATIVE: CASE EVENT DATE: 20230304
